FAERS Safety Report 13878495 (Version 1)
Quarter: 2017Q3

REPORT INFORMATION
  Report Type: Spontaneous
  Country: US (occurrence: US)
  Receive Date: 20170817
  Receipt Date: 20170817
  Transmission Date: 20171127
  Serious: No
  Sender: FDA-Public Use
  Company Number: US-ROCHE-1959755

PATIENT
  Age: 64 Year
  Sex: Female

DRUGS (1)
  1. PEGASYS [Suspect]
     Active Substance: PEGINTERFERON ALFA-2A
     Indication: MYELOFIBROSIS
     Dosage: 45MCG  ONCE PER WEEK ;ONGOING: NO 180MCG PER .5ML PREFILLED SYRINGE
     Route: 058
     Dates: start: 20150420, end: 20170702

REACTIONS (3)
  - Drug dose omission [Unknown]
  - Needle issue [Unknown]
  - No adverse event [Unknown]

NARRATIVE: CASE EVENT DATE: 20170702
